FAERS Safety Report 12394223 (Version 2)
Quarter: 2016Q2

REPORT INFORMATION
  Report Type: Report from Study
  Country: BR (occurrence: BR)
  Receive Date: 20160523
  Receipt Date: 20160607
  Transmission Date: 20160815
  Serious: Yes (Death, Hospitalization, Other)
  Sender: FDA-Public Use
  Company Number: BR-ABBVIE-16K-020-1633735-00

PATIENT
  Age: 77 Year
  Sex: Male

DRUGS (1)
  1. HUMIRA [Suspect]
     Active Substance: ADALIMUMAB
     Indication: RHEUMATOID ARTHRITIS
     Route: 058
     Dates: start: 20150731, end: 2016

REACTIONS (14)
  - Cardiac failure [Unknown]
  - Arrhythmia [Unknown]
  - Respiratory tract infection [Unknown]
  - Hypotension [Unknown]
  - Pneumonia [Unknown]
  - Asthenia [Unknown]
  - Acute myocardial infarction [Fatal]
  - Cardiac failure [Fatal]
  - Cardiac arrest [Fatal]
  - Septic shock [Fatal]
  - Acute myocardial infarction [Unknown]
  - Heart rate decreased [Unknown]
  - Malaise [Unknown]
  - Hypertension [Unknown]

NARRATIVE: CASE EVENT DATE: 2015
